FAERS Safety Report 7955160-2 (Version None)
Quarter: 2011Q4

REPORT INFORMATION
  Report Type: 
  Country: None (occurrence: None)
  Receive Date: 20111202
  Receipt Date: 20111129
  Transmission Date: 20120403
  Serious: Yes (Hospitalization, Other)
  Sender: FDA-Public Use
  Company Number: US-BAYER-200927396NA

PATIENT
  Age: 54 Year
  Sex: Female

DRUGS (11)
  1. BETASERON [Suspect]
     Indication: MULTIPLE SCLEROSIS
     Route: 058
     Dates: start: 19930901, end: 19960101
  2. BETASERON [Suspect]
     Route: 058
     Dates: start: 20070601
  3. BACLOFEN [Concomitant]
     Indication: MUSCLE SPASTICITY
     Dosage: UNK
  4. PROGESTERONE [Concomitant]
  5. ESTROGENIC SUBSTANCE [Concomitant]
  6. FOSAMAX [Concomitant]
  7. ACETAMINOPHEN [Concomitant]
     Indication: PREMEDICATION
  8. AMANTADINE HCL [Concomitant]
  9. MICARDIS [Concomitant]
  10. CITALOPRAM HYDROBROMIDE [Concomitant]
  11. OMEPRAZOLE [Concomitant]

REACTIONS (13)
  - FLUID RETENTION [None]
  - ANKLE FRACTURE [None]
  - ABASIA [None]
  - MUSCLE SPASTICITY [None]
  - INJECTION SITE ABSCESS STERILE [None]
  - PNEUMONIA [None]
  - INJECTION SITE SWELLING [None]
  - INJECTION SITE ERYTHEMA [None]
  - CYSTITIS [None]
  - GAIT DISTURBANCE [None]
  - CHILLS [None]
  - INJECTION SITE PAIN [None]
  - MULTIPLE SCLEROSIS [None]
